FAERS Safety Report 10189664 (Version 1)
Quarter: 2014Q2

REPORT INFORMATION
  Report Type: Spontaneous
  Country: US (occurrence: US)
  Receive Date: 20140522
  Receipt Date: 20140522
  Transmission Date: 20141212
  Serious: Yes (Other)
  Sender: FDA-Public Use
  Company Number: US-SANOFI-AVENTIS-2013SA086681

PATIENT
  Age: 83 Year
  Sex: Male
  Weight: 70.3 kg

DRUGS (6)
  1. LANTUS [Suspect]
     Indication: DIABETES MELLITUS
     Dosage: THERAPY START DATE: 5 YEARS AGO
     Route: 065
     Dates: start: 1998
  2. METFORMIN [Concomitant]
     Indication: DIABETES MELLITUS
  3. ALLOPURINOL [Concomitant]
     Indication: GOUT
  4. LISINOPRIL [Concomitant]
     Indication: DIABETES MELLITUS
  5. GABAPENTIN [Concomitant]
     Indication: NEUROPATHY PERIPHERAL
  6. LOVASTATIN [Concomitant]
     Indication: BLOOD CHOLESTEROL

REACTIONS (6)
  - Hypoglycaemia [Unknown]
  - Fear [Unknown]
  - Hypoglycaemic unconsciousness [Unknown]
  - Glycosylated haemoglobin increased [Unknown]
  - Drug ineffective [Unknown]
  - Inappropriate schedule of drug administration [Unknown]
